FAERS Safety Report 9358632 (Version 2)
Quarter: 2013Q3

REPORT INFORMATION
  Report Type: Spontaneous
  Country: US (occurrence: US)
  Receive Date: 20130620
  Receipt Date: 20130730
  Transmission Date: 20140515
  Serious: Yes (Hospitalization)
  Sender: FDA-Public Use
  Company Number: US-GLAXOSMITHKLINE-A1027450A

PATIENT
  Age: 69 Year
  Sex: Male

DRUGS (23)
  1. ADVAIR [Suspect]
     Indication: CHRONIC OBSTRUCTIVE PULMONARY DISEASE
     Dosage: 1PUFF TWICE PER DAY
     Route: 055
     Dates: start: 2003
  2. QUINAPRIL [Concomitant]
  3. FUROSEMIDE [Concomitant]
  4. KLOR-CON [Concomitant]
  5. PREDNISONE [Concomitant]
  6. ALBUTEROL [Concomitant]
  7. IPRATROPIUM [Concomitant]
  8. OXYGEN [Concomitant]
  9. CLONAZEPAM [Concomitant]
  10. LYRICA [Concomitant]
  11. KETAMINE [Concomitant]
  12. OXYCODONE [Concomitant]
  13. SIMVASTATIN [Concomitant]
  14. BIPAP [Concomitant]
  15. ACETONIDE TRIAMCINOLONE [Concomitant]
  16. MOLASSES [Concomitant]
  17. MULTIVITAMIN [Concomitant]
  18. OSCAL [Concomitant]
  19. REFRESH [Concomitant]
  20. DULCOLAX [Concomitant]
  21. CETAPHIL [Concomitant]
  22. BACLOFEN [Concomitant]
  23. CYCLOBENZAPRINE [Concomitant]

REACTIONS (10)
  - Musculoskeletal disorder [Recovering/Resolving]
  - Mobility decreased [Recovering/Resolving]
  - Feeling abnormal [Recovering/Resolving]
  - Malaise [Recovering/Resolving]
  - Drug ineffective [Unknown]
  - Product quality issue [Unknown]
  - Loss of consciousness [Recovered/Resolved]
  - Chronic obstructive pulmonary disease [Recovering/Resolving]
  - Dyspnoea [Recovering/Resolving]
  - Abnormal behaviour [Recovering/Resolving]
